FAERS Safety Report 9708216 (Version 1)
Quarter: 2013Q4

REPORT INFORMATION
  Report Type: Spontaneous
  Country: US (occurrence: None)
  Receive Date: 20131121
  Receipt Date: 20131121
  Transmission Date: 20140711
  Serious: Yes (Death)
  Sender: FDA-Public Use
  Company Number: 2013HINLIT0263

PATIENT
  Age: 61 Year
  Sex: Male

DRUGS (4)
  1. HYDROXYZINE [Suspect]
     Indication: PRODUCT USED FOR UNKNOWN INDICATION
  2. GABAPENTIN [Suspect]
     Indication: PRODUCT USED FOR UNKNOWN INDICATION
  3. IBUPROFEN [Suspect]
     Indication: PRODUCT USED FOR UNKNOWN INDICATION
  4. PAROXETINE [Suspect]
     Indication: PRODUCT USED FOR UNKNOWN INDICATION

REACTIONS (1)
  - Death [None]
